FAERS Safety Report 6016100-9 (Version None)
Quarter: 2008Q4

REPORT INFORMATION
  Report Type: 
  Country: None (occurrence: None)
  Receive Date: 20081222
  Receipt Date: 20081216
  Transmission Date: 20090506
  Serious: Yes (Hospitalization, Other)
  Sender: FDA-Public Use
  Company Number: US-ELI_LILLY_AND_COMPANY-US200812004197

PATIENT
  Age: 49 Year
  Sex: Female

DRUGS (3)
  1. FORTEO [Suspect]
     Dosage: UNK, UNK
     Dates: start: 20080101, end: 20080101
  2. FORTEO [Suspect]
     Dates: start: 20081215
  3. VITAMIN D [Concomitant]

REACTIONS (2)
  - BLOOD CALCIUM INCREASED [None]
  - HEPATIC FAILURE [None]
